FAERS Safety Report 5675328-8 (Version None)
Quarter: 2008Q2

REPORT INFORMATION
  Report Type: 
  Country: None (occurrence: None)
  Receive Date: 20080307
  Receipt Date: 20070607
  Transmission Date: 20081010
  Serious: Yes (Hospitalization, Other)
  Sender: FDA-Public Use
  Company Number: US200706001883

PATIENT
  Age: 85 Year
  Sex: Female

DRUGS (1)
  1. GEMZAR(GEMCITABINE HYDROCHLORIDE) VIAL [Suspect]
     Indication: BREAST CANCER METASTATIC
     Dosage: 800 MG/M2, INTRAVENOUS
     Route: 042
     Dates: start: 20070601

REACTIONS (3)
  - ANAEMIA [None]
  - NEUTROPENIA [None]
  - SEPSIS [None]
